FAERS Safety Report 18776119 (Version 2)
Quarter: 2021Q2

REPORT INFORMATION
  Report Type: Spontaneous
  Country: US (occurrence: US)
  Receive Date: 20210122
  Receipt Date: 20210503
  Transmission Date: 20210717
  Serious: Yes (Hospitalization)
  Sender: FDA-Public Use
  Company Number: US-TEVA-2021-US-1869952

PATIENT
  Age: 37 Year
  Sex: Male

DRUGS (10)
  1. SODIUM BICARBONATE. [Concomitant]
     Active Substance: SODIUM BICARBONATE
     Indication: TOXICITY TO VARIOUS AGENTS
     Route: 050
  2. EPINEPHRINE. [Concomitant]
     Active Substance: EPINEPHRINE
     Indication: HYPOTENSION
     Route: 050
  3. POTASSIUM CHLORIDE. [Concomitant]
     Active Substance: POTASSIUM CHLORIDE
     Indication: HYPOKALAEMIA
     Route: 042
  4. MAGNESIUM SULFATE. [Concomitant]
     Active Substance: MAGNESIUM SULFATE
     Indication: TOXICITY TO VARIOUS AGENTS
     Route: 042
  5. DIAZEPAM. [Suspect]
     Active Substance: DIAZEPAM
     Indication: CARDIOTOXICITY
     Dosage: APPROXIMATELY 1MG/KG
     Route: 042
  6. EPINEPHRINE. [Concomitant]
     Active Substance: EPINEPHRINE
     Indication: BRADYCARDIA
     Route: 050
  7. SODIUM BICARBONATE. [Concomitant]
     Active Substance: SODIUM BICARBONATE
     Indication: TOXICITY TO VARIOUS AGENTS
     Route: 042
  8. HYDOXYCHLOROQUINE [Suspect]
     Active Substance: HYDROXYCHLOROQUINE
     Indication: PRODUCT USED FOR UNKNOWN INDICATION
     Dosage: 80 TABLETS OF 200MG (16G) HYDROXYCHLOROQUINE
     Route: 048
  9. DIAZEPAM. [Suspect]
     Active Substance: DIAZEPAM
     Indication: SEIZURE PROPHYLAXIS
  10. SODIUM CHLORIDE. [Concomitant]
     Active Substance: SODIUM CHLORIDE
     Indication: CARDIOTOXICITY
     Dosage: SODIUM CHLORIDE: 3 %; ADDITIONAL INFO: ACTION TAKEN: THERAPY CONTINUED
     Route: 040

REACTIONS (8)
  - Mental status changes [Recovered/Resolved]
  - Bradycardia [Recovering/Resolving]
  - Cardiotoxicity [Recovering/Resolving]
  - Toxicity to various agents [Recovered/Resolved]
  - Hypokalaemia [Recovering/Resolving]
  - Atrioventricular block complete [Recovering/Resolving]
  - Hypotension [Recovering/Resolving]
  - Intentional overdose [Unknown]
